FAERS Safety Report 8484061-9 (Version None)
Quarter: 2012Q3

REPORT INFORMATION
  Report Type: 
  Country: None (occurrence: None)
  Receive Date: 20120703
  Receipt Date: 20120622
  Transmission Date: 20120928
  Serious: Yes (Hospitalization, Other)
  Sender: FDA-Public Use
  Company Number: JP-MILLENNIUM PHARMACEUTICALS, INC.-2012-04236

PATIENT

DRUGS (3)
  1. MELPHALAN HYDROCHLORIDE [Concomitant]
  2. VELCADE [Suspect]
     Indication: PRODUCT USED FOR UNKNOWN INDICATION
     Dosage: 1.3 MG/M2, UNK
     Route: 042
  3. PREDNISOLONE [Concomitant]

REACTIONS (2)
  - ILEUS [None]
  - ABDOMINAL PAIN [None]
